FAERS Safety Report 8375048-5 (Version None)
Quarter: 2012Q2

REPORT INFORMATION
  Report Type: 
  Country: None (occurrence: None)
  Receive Date: 20120521
  Receipt Date: 20120509
  Transmission Date: 20120825
  Serious: Yes (Death)
  Sender: FDA-Public Use
  Company Number: AU-BAXTER-2012BAX005155

PATIENT
  Sex: Female

DRUGS (5)
  1. SYNTHAMIN 17 AMINO ACID 10 PERCENT WITH ELECTROLYTES 500ML INJECTION B [Suspect]
     Indication: PARENTERAL NUTRITION
     Route: 065
  2. CLINOLEIC 20% SOY OIL AND OLIVE OIL EMULSION FOR INJECTION BAG [Suspect]
     Indication: PARENTERAL NUTRITION
     Route: 065
  3. BAXTER 25% GLUCOSE 250MG_1L INJECTION BP BAG AHB0224 [Suspect]
     Indication: PARENTERAL NUTRITION
     Route: 065
  4. BAXTER 25% GLUCOSE 250MG_1L INJECTION BP BAG AHB0224 [Suspect]
     Dates: end: 20120508
  5. BAXTER 25% GLUCOSE 250MG_1L INJECTION BP BAG AHB0224 [Suspect]
     Dates: end: 20120508

REACTIONS (1)
  - DEATH [None]
